FAERS Safety Report 8785624 (Version 1)
Quarter: 2012Q4

REPORT INFORMATION
  Report Type: Report from Study
  Country: GB (occurrence: GB)
  Receive Date: 20120914
  Receipt Date: 20120914
  Transmission Date: 20130627
  Serious: Yes (Death)
  Sender: FDA-Public Use
  Company Number: GB-SANOFI-AVENTIS-2012SA066217

PATIENT
  Age: 36 Year
  Sex: Male
  Weight: 91.8 kg

DRUGS (11)
  1. DOCETAXEL [Suspect]
     Indication: NON-SMALL CELL LUNG CANCER
     Route: 042
     Dates: start: 20100903, end: 20100903
  2. DOCETAXEL [Suspect]
     Indication: NON-SMALL CELL LUNG CANCER
     Route: 042
     Dates: start: 20101216, end: 20101216
  3. INVESTIGATIONAL DRUG [Suspect]
     Indication: NON-SMALL CELL LUNG CANCER STAGE IV
     Route: 048
     Dates: start: 20110204, end: 20110204
  4. LANSOPRAZOLE [Concomitant]
     Dates: start: 20110201
  5. PARACETAMOL [Concomitant]
     Dates: start: 20100902, end: 201102
  6. DICLOFENAC [Concomitant]
     Dates: start: 20110201
  7. MORPHINE SULFATE [Concomitant]
     Dates: start: 20110201
  8. MOVICOL [Concomitant]
     Dates: start: 20110201
  9. DEXAMETHASONE [Concomitant]
     Dates: start: 20110201
  10. CO-DANTHRAMER [Concomitant]
     Dates: start: 20110201
  11. ENOXAPARIN [Concomitant]
     Dates: start: 20110201

REACTIONS (2)
  - Deep vein thrombosis [Fatal]
  - Pulmonary embolism [Fatal]
